FAERS Safety Report 4393389-3 (Version None)
Quarter: 2004Q3

REPORT INFORMATION
  Report Type: 
  Country: None (occurrence: None)
  Receive Date: 20040707
  Receipt Date: 20040707
  Transmission Date: 20050211
  Serious: Yes (Hospitalization)
  Sender: FDA-Public Use
  Company Number: None

PATIENT
  Age: 83 Year
  Sex: Female
  Weight: 65 kg

DRUGS (3)
  1. VIOXX [Suspect]
     Indication: ARTHRITIS
     Dosage: 25 MG DAILY ORAL
     Route: 048
     Dates: start: 20040626, end: 20040628
  2. PRINIVIL [Suspect]
     Indication: HYPERTENSION
     Dosage: 2.5 MG DAILY ORAL
     Route: 048
     Dates: start: 20030626, end: 20040628
  3. GLUCOPHAGE [Concomitant]

REACTIONS (3)
  - BLOOD CREATININE INCREASED [None]
  - FALL [None]
  - MENTAL STATUS CHANGES [None]
